FAERS Safety Report 9486443 (Version 1)
Quarter: 2013Q3

REPORT INFORMATION
  Report Type: Spontaneous
  Country: US (occurrence: US)
  Receive Date: 20130829
  Receipt Date: 20130829
  Transmission Date: 20140515
  Serious: Yes (Hospitalization, Other)
  Sender: FDA-Public Use
  Company Number: US-BAYER-2013-103552

PATIENT
  Age: 25 Year
  Sex: Female

DRUGS (6)
  1. YASMIN [Suspect]
  2. TORADOL [Concomitant]
  3. MOTRIN [Concomitant]
  4. LOZOL [Concomitant]
  5. IRON [Concomitant]
  6. PROTONIX [Concomitant]

REACTIONS (2)
  - Pulmonary embolism [None]
  - Deep vein thrombosis [None]
